FAERS Safety Report 21805876 (Version 1)
Quarter: 2023Q1

REPORT INFORMATION
  Report Type: Spontaneous
  Country: US (occurrence: US)
  Receive Date: 20230102
  Receipt Date: 20230102
  Transmission Date: 20230417
  Serious: Yes (Death, Other)
  Sender: FDA-Public Use
  Company Number: US-INCYTE CORPORATION-2022IN012859

PATIENT

DRUGS (1)
  1. JAKAFI [Suspect]
     Active Substance: RUXOLITINIB
     Indication: Polycythaemia vera
     Dosage: 1 TABLET BY MOUTH TWICE DAILY FOR 1 DAY THEN TAKE 1 TABLET ONCE DAILY FOR 6 DAYS, THEN REPEAT CYCLE
     Route: 048
     Dates: start: 201803

REACTIONS (1)
  - Death [Fatal]
